FAERS Safety Report 4763523-1 (Version None)
Quarter: 2005Q3

REPORT INFORMATION
  Report Type: 
  Country: None (occurrence: None)
  Receive Date: 20050908
  Receipt Date: 20050901
  Transmission Date: 20060218
  Serious: Yes (Death)
  Sender: FDA-Public Use
  Company Number: 200512935FR

PATIENT
  Age: 58 Year
  Sex: Male

DRUGS (6)
  1. LOVENOX [Suspect]
     Indication: THROMBOSIS PROPHYLAXIS
     Route: 058
     Dates: start: 20031111, end: 20031121
  2. HEPARIN SODIC [Suspect]
     Indication: THROMBOSIS PROPHYLAXIS
     Route: 042
     Dates: start: 20031121, end: 20031122
  3. DEPAKENE [Concomitant]
     Route: 042
  4. FENTANYL [Concomitant]
  5. BREXIN [Concomitant]
  6. ORGARAN [Concomitant]
     Dates: start: 20031122, end: 20031127

REACTIONS (3)
  - HEPARIN-INDUCED THROMBOCYTOPENIA [None]
  - PULMONARY EMBOLISM [None]
  - THROMBOCYTOPENIA [None]
